FAERS Safety Report 4878938-0 (Version None)
Quarter: 2006Q1

REPORT INFORMATION
  Report Type: 
  Country: None (occurrence: None)
  Receive Date: 20060112
  Receipt Date: 20060109
  Transmission Date: 20060701
  Serious: Yes (Congenital Anomaly, Other)
  Sender: FDA-Public Use
  Company Number: PHBS2006FI00679

PATIENT

DRUGS (1)
  1. TRILEPTAL [Suspect]
     Route: 064

REACTIONS (3)
  - ALTERED VISUAL DEPTH PERCEPTION [None]
  - DRUG EXPOSURE DURING PREGNANCY [None]
  - VENTRICULAR SEPTAL DEFECT [None]
